FAERS Safety Report 9579892 (Version 5)
Quarter: 2014Q2

REPORT INFORMATION
  Report Type: Report from Study
  Country: VE (occurrence: VE)
  Receive Date: 20131002
  Receipt Date: 20140527
  Transmission Date: 20141212
  Serious: Yes (Hospitalization)
  Sender: FDA-Public Use
  Company Number: VE-ROCHE-1282327

PATIENT
  Sex: Female

DRUGS (5)
  1. XOLAIR [Suspect]
     Indication: ASTHMA
     Route: 058
     Dates: start: 20130722
  2. XOLAIR [Suspect]
     Route: 058
     Dates: start: 20130822
  3. XOLAIR [Suspect]
     Route: 058
     Dates: start: 20130924, end: 201402
  4. FORADIL [Concomitant]
     Indication: ASTHMA
     Route: 065
  5. MIFLONIDE [Concomitant]
     Indication: ASTHMA
     Route: 065

REACTIONS (3)
  - Nephrolithiasis [Recovered/Resolved]
  - Fistula [Recovered/Resolved]
  - Urinary tract infection [Recovering/Resolving]
